FAERS Safety Report 21282917 (Version 2)
Quarter: 2022Q3

REPORT INFORMATION
  Report Type: Spontaneous
  Country: US (occurrence: US)
  Receive Date: 20220901
  Receipt Date: 20220906
  Transmission Date: 20221027
  Serious: Yes (Other)
  Sender: FDA-Public Use
  Company Number: US-ALNYLAM PHARMACEUTICALS, INC.-ALN-2022-003078

PATIENT

DRUGS (2)
  1. GIVLAARI [Suspect]
     Active Substance: GIVOSIRAN SODIUM
     Indication: Porphyria acute
     Dosage: 2.5 MILLIGRAM/KILOGRAM, MONTHLY
     Route: 058
  2. PANHEMATIN [Concomitant]
     Active Substance: HEMIN
     Indication: Porphyria acute
     Dosage: 3 MILLIGRAM/KILOGRAM, WEEKLY

REACTIONS (2)
  - Porphyria acute [Not Recovered/Not Resolved]
  - Drug ineffective [Not Recovered/Not Resolved]
